FAERS Safety Report 7658599-8 (Version None)
Quarter: 2011Q3

REPORT INFORMATION
  Report Type: 
  Country: None (occurrence: None)
  Receive Date: 20110802
  Receipt Date: 20110718
  Transmission Date: 20111222
  Serious: Yes (Hospitalization)
  Sender: FDA-Public Use
  Company Number: GLIM20110002

PATIENT
  Age: 11 Month
  Sex: Male

DRUGS (1)
  1. GLIMEPIRIDE [Suspect]
     Indication: ACCIDENTAL EXPOSURE
     Dosage: 2 MG, ORAL
     Route: 048

REACTIONS (3)
  - ACCIDENTAL DRUG INTAKE BY CHILD [None]
  - HYPOGLYCAEMIA [None]
  - CONVULSION [None]
